FAERS Safety Report 8050221-4 (Version None)
Quarter: 2012Q1

REPORT INFORMATION
  Report Type: 
  Country: None (occurrence: None)
  Receive Date: 20120117
  Receipt Date: 20120110
  Transmission Date: 20120608
  Serious: Yes (Other)
  Sender: FDA-Public Use
  Company Number: PHHY2012US002063

PATIENT
  Age: 48 Year
  Sex: Male

DRUGS (2)
  1. LEUCOVORIN CALCIUM [Concomitant]
     Indication: GASTRIC CANCER
     Dosage: UNK UKN, UNK
  2. FLUOROURACIL [Suspect]
     Indication: GASTRIC CANCER
     Dosage: UNK UKN, UNK

REACTIONS (10)
  - OCULAR ICTERUS [None]
  - JAUNDICE [None]
  - ASCITES [None]
  - HEPATIC CONGESTION [None]
  - HEPATIC STEATOSIS [None]
  - VENOOCCLUSIVE LIVER DISEASE [None]
  - HEPATIC NECROSIS [None]
  - ABDOMINAL PAIN UPPER [None]
  - HEPATIC LESION [None]
  - LIVER DISORDER [None]
